FAERS Safety Report 5955856-8 (Version None)
Quarter: 2008Q4

REPORT INFORMATION
  Report Type: 
  Country: None (occurrence: None)
  Receive Date: 20081117
  Receipt Date: 20081108
  Transmission Date: 20090506
  Serious: Yes (Other)
  Sender: FDA-Public Use
  Company Number: US-PFIZER INC-2008095471

PATIENT
  Age: 38 Year
  Sex: Female
  Weight: 77.1 kg

DRUGS (2)
  1. CHANTIX [Suspect]
     Indication: SMOKING CESSATION THERAPY
     Dosage: TEXT:EVERY DAY
     Dates: start: 20081001
  2. EFFEXOR XR [Concomitant]
     Indication: DEPRESSION

REACTIONS (4)
  - ANGER [None]
  - DEPRESSION [None]
  - HOMICIDAL IDEATION [None]
  - PERSONALITY CHANGE [None]
